FAERS Safety Report 9028161 (Version 1)
Quarter: 2013Q1

REPORT INFORMATION
  Report Type: Spontaneous
  Country: US (occurrence: None)
  Receive Date: 20130115
  Receipt Date: 20130115
  Transmission Date: 20140127
  Serious: Yes (Other)
  Sender: FDA-Public Use
  Company Number: None

PATIENT
  Age: 60 Year
  Sex: Male
  Weight: 79.38 kg

DRUGS (2)
  1. CAFFEINE [Suspect]
     Indication: DEPRESSION
     Dates: start: 20121201, end: 20130102
  2. CAFFEINE [Suspect]
     Indication: GASTROOESOPHAGEAL REFLUX DISEASE
     Dates: start: 20121201, end: 20130102

REACTIONS (2)
  - Dizziness [None]
  - Diplopia [None]
